FAERS Safety Report 9695973 (Version 1)
Quarter: 2013Q4

REPORT INFORMATION
  Report Type: Spontaneous
  Country: IT (occurrence: IT)
  Receive Date: 20131119
  Receipt Date: 20131119
  Transmission Date: 20140711
  Serious: Yes (Hospitalization)
  Sender: FDA-Public Use
  Company Number: IT-BRISTOL-MYERS SQUIBB COMPANY-19796770

PATIENT
  Age: 64 Year
  Sex: Female

DRUGS (8)
  1. COUMADIN TABS 5 MG [Suspect]
     Indication: MITRAL VALVE REPLACEMENT
     Route: 048
     Dates: start: 20130101, end: 20131017
  2. KEPPRA [Concomitant]
     Dosage: 500 MG TABLETS
     Route: 048
  3. PORTOLAC [Concomitant]
     Dosage: 10 GR POWDER FOR ORAL SOLUTION^ 1 DOSAGE UNIT ORALLY
     Route: 048
  4. CORDARONE [Concomitant]
     Dosage: 200M MG TABLETS^ DOSAGE 200 MG ORALLY
     Route: 048
  5. INDERAL [Concomitant]
     Dosage: 40 MG TABLETS
     Route: 048
  6. ALDACTONE [Concomitant]
     Dosage: 100 MG TABLETS
     Route: 048
  7. LASIX [Concomitant]
     Dosage: 25 MG TABLETS
     Route: 048
  8. PANTORC [Concomitant]
     Dosage: 40 MG TABLETS
     Route: 048

REACTIONS (3)
  - Dizziness [Recovered/Resolved]
  - Dysarthria [Recovered/Resolved]
  - International normalised ratio increased [Recovered/Resolved]
